FAERS Safety Report 8321413-1 (Version None)
Quarter: 2012Q2

REPORT INFORMATION
  Report Type: 
  Country: None (occurrence: None)
  Receive Date: 20120430
  Receipt Date: 20120416
  Transmission Date: 20120825
  Serious: No
  Sender: FDA-Public Use
  Company Number: US-BAYER-2012-036782

PATIENT
  Sex: Female

DRUGS (1)
  1. MIRENA [Suspect]
     Indication: CONTRACEPTION
     Dosage: 20 MCG/24HR, CONT
     Route: 015
     Dates: start: 20110901

REACTIONS (5)
  - ABDOMINAL DISTENSION [None]
  - MALAISE [None]
  - DYSMENORRHOEA [None]
  - ACNE [None]
  - OEDEMA PERIPHERAL [None]
